FAERS Safety Report 7303713-7 (Version None)
Quarter: 2011Q1

REPORT INFORMATION
  Report Type: 
  Country: None (occurrence: None)
  Receive Date: 20110221
  Receipt Date: 20110210
  Transmission Date: 20110831
  Serious: Yes (Other)
  Sender: FDA-Public Use
  Company Number: US-ROCHE-735435

PATIENT
  Sex: Male
  Weight: 97.5 kg

DRUGS (5)
  1. ACCUTANE [Suspect]
     Indication: ACNE
     Route: 065
     Dates: start: 19920506, end: 19920615
  2. ACCUTANE [Suspect]
     Route: 065
     Dates: start: 19930624, end: 19930723
  3. ACCUTANE [Suspect]
     Route: 065
     Dates: start: 19931002, end: 19931030
  4. ACCUTANE [Suspect]
     Route: 065
     Dates: end: 19931101
  5. ACCUTANE [Suspect]
     Route: 065
     Dates: start: 19930823, end: 19930921

REACTIONS (10)
  - INFLAMMATORY BOWEL DISEASE [None]
  - ABDOMINAL PAIN [None]
  - ANAL FISSURE [None]
  - RECTAL HAEMORRHAGE [None]
  - HYPERTROPHIC ANAL PAPILLA [None]
  - BLOOD TRIGLYCERIDES INCREASED [None]
  - COLONIC POLYP [None]
  - DIVERTICULITIS [None]
  - NAUSEA [None]
  - COLITIS ULCERATIVE [None]
